FAERS Safety Report 15410388 (Version 1)
Quarter: 2018Q3

REPORT INFORMATION
  Report Type: Spontaneous
  Country: FR (occurrence: FR)
  Receive Date: 20180921
  Receipt Date: 20180921
  Transmission Date: 20181010
  Serious: Yes (Other)
  Sender: FDA-Public Use
  Company Number: PHHY2018FR100255

PATIENT
  Age: 38 Year
  Sex: Male

DRUGS (24)
  1. CYCLOPHOSPHAMIDE. [Suspect]
     Active Substance: CYCLOPHOSPHAMIDE
     Indication: CENTRAL NERVOUS SYSTEM LYMPHOMA
     Dosage: UNK (DEBULKING CHEMOTHERAPY)
     Route: 065
  2. CYTARABINE. [Suspect]
     Active Substance: CYTARABINE
     Dosage: 3000 MG/M2, QD (FROM 4 COURSES OF R?DIAM AT 2ND RELAPSE)
     Route: 065
  3. CYCLOPHOSPHAMIDE. [Suspect]
     Active Substance: CYCLOPHOSPHAMIDE
     Indication: PROPHYLAXIS AGAINST TRANSPLANT REJECTION
     Dosage: 250 MG/M2, UNK (2 CYCLES OF COPADEM  INDUCTION)
     Route: 065
  4. DEXAMETHASONE. [Suspect]
     Active Substance: DEXAMETHASONE
     Indication: PROPHYLAXIS AGAINST TRANSPLANT REJECTION
     Dosage: 40 MG, UNK (FROM 4 COURSES OF R?DIAM AT 2ND RELAPSE)
     Route: 065
  5. DEXAMETHASONE. [Suspect]
     Active Substance: DEXAMETHASONE
     Dosage: 40 MG, UNK (3 CYCLES OF DIAM AT 1ST RELAPSE)
     Route: 065
  6. CYTARABINE. [Suspect]
     Active Substance: CYTARABINE
     Dosage: 2000 MG/M2, UNK
     Route: 065
  7. METHOTREXATE. [Suspect]
     Active Substance: METHOTREXATE
     Dosage: 15 MG, UNK (3 CYCLES OF DIAM AT 1ST RELAPSE)
     Route: 037
  8. BUSULFAN. [Suspect]
     Active Substance: BUSULFAN
     Indication: PROPHYLAXIS AGAINST TRANSPLANT REJECTION
     Dosage: 0.8 MG/KG X 4, CONDITIONING THERAPY FOR SECOND ASCT
     Route: 042
  9. THIOTEPA. [Suspect]
     Active Substance: THIOTEPA
     Indication: PROPHYLAXIS AGAINST TRANSPLANT REJECTION
     Dosage: 250 MG/M2, UNK (CONDITIONING THERAPY FOR SECOND ASCT)
     Route: 065
  10. METHOTREXATE. [Suspect]
     Active Substance: METHOTREXATE
     Indication: PRODUCT USED FOR UNKNOWN INDICATION
     Dosage: 3000 MG/M2, UNK (FROM 4 COURSES OF R?DIAM AT 2ND RELAPSE)
     Route: 065
  11. METHOTREXATE. [Suspect]
     Active Substance: METHOTREXATE
     Dosage: 3000 MG/M2, UNK (3 CYCLES OF DIAM AT 1ST RELAPSE)
     Route: 065
  12. CYTARABINE. [Suspect]
     Active Substance: CYTARABINE
     Indication: CENTRAL NERVOUS SYSTEM LYMPHOMA
     Dosage: UNK (2 CYCLES OF COPADEM INDUCTION)
     Route: 037
  13. CYTARABINE. [Suspect]
     Active Substance: CYTARABINE
     Indication: PROPHYLAXIS AGAINST TRANSPLANT REJECTION
     Dosage: 100 MG/M2, UNK (2 CYCLES OF CYM CONSOLIDATION)
     Route: 065
  14. CYTARABINE. [Suspect]
     Active Substance: CYTARABINE
     Dosage: 3000 MG/M2, QD (3 CYCLES OF DIAM AT 1ST RELAPSE)
     Route: 065
  15. FILGRASTIM [Concomitant]
     Active Substance: FILGRASTIM
     Indication: PRODUCT USED FOR UNKNOWN INDICATION
     Dosage: UNK
     Route: 065
  16. METHOTREXATE. [Suspect]
     Active Substance: METHOTREXATE
     Dosage: 3000 MG/M2, UNK (2 CYCLES OF CYM CONSOLIDATION)
     Route: 065
  17. METHOTREXATE. [Suspect]
     Active Substance: METHOTREXATE
     Dosage: 3000 MG/M2, UNK (2 CYCLES OF COPADEM INDUCTION)
     Route: 065
  18. CYCLOPHOSPHAMIDE. [Suspect]
     Active Substance: CYCLOPHOSPHAMIDE
     Dosage: 60 MG/KG, UNK (CONDITIONING THERAPY FOR SECOND ASCT)
     Route: 065
  19. IFOSFAMIDE. [Suspect]
     Active Substance: IFOSFAMIDE
     Indication: CENTRAL NERVOUS SYSTEM LYMPHOMA
     Dosage: 1500 MG/M2, UNK (3 CYCLES OF DIAM AT 1ST RELAPSE)
     Route: 065
  20. IFOSFAMIDE. [Suspect]
     Active Substance: IFOSFAMIDE
     Dosage: 1500 MG/M2, UNK (FROM 4 COURSES OF R?DIAM AT 2ND RELAPSE)
     Route: 065
  21. LENOGRASTIM [Concomitant]
     Active Substance: LENOGRASTIM
     Indication: PRODUCT USED FOR UNKNOWN INDICATION
     Dosage: UNK (34 MUI/D, STARTING AT DAY 12 AFTER THE 2ND CYCLE OF R?DIAM)
     Route: 065
  22. RITUXIMAB. [Suspect]
     Active Substance: RITUXIMAB
     Indication: CENTRAL NERVOUS SYSTEM LYMPHOMA
     Dosage: 375 MG/M2, UNK (FROM 4 COURSES OF R?DIAM)
     Route: 042
  23. DEXAMETHASONE. [Suspect]
     Active Substance: DEXAMETHASONE
     Dosage: UNK (CONDITIONED BY BEAM?ARAC HIGH DOSE BEFORE ASCT)
     Route: 065
  24. METHOTREXATE. [Suspect]
     Active Substance: METHOTREXATE
     Dosage: 15 MG, UNK (FROM 4 COURSES OF R?DIAM AT 2ND RELAPSE)
     Route: 065

REACTIONS (2)
  - Pseudomonal sepsis [Recovering/Resolving]
  - Enterobacter sepsis [Recovering/Resolving]
